FAERS Safety Report 14220520 (Version 1)
Quarter: 2017Q4

REPORT INFORMATION
  Report Type: Spontaneous
  Country: US (occurrence: US)
  Receive Date: 20171124
  Receipt Date: 20171124
  Transmission Date: 20180321
  Serious: Yes (Other)
  Sender: FDA-Public Use
  Company Number: US-009507513-1711USA007252

PATIENT
  Sex: Female

DRUGS (1)
  1. NEXPLANON [Suspect]
     Active Substance: ETONOGESTREL
     Indication: CONTRACEPTION
     Dosage: IMPLANT, UNK
     Route: 059
     Dates: start: 20171102

REACTIONS (3)
  - Unintended pregnancy [Unknown]
  - Pregnancy with implant contraceptive [Unknown]
  - Complication associated with device [Unknown]

NARRATIVE: CASE EVENT DATE: 2017
